FAERS Safety Report 5039829-8 (Version None)
Quarter: 2006Q2

REPORT INFORMATION
  Report Type: 
  Country: None (occurrence: None)
  Receive Date: 20060626
  Receipt Date: 20060608
  Transmission Date: 20061013
  Serious: Yes (Hospitalization)
  Sender: FDA-Public Use
  Company Number: MPS1-10547

PATIENT
  Age: 15 Month
  Sex: Female

DRUGS (11)
  1. ALDURAZYME [Suspect]
     Indication: MUCOPOLYSACCHARIDOSIS I
  2. MILRINONE [Concomitant]
  3. DOPAMINE [Concomitant]
  4. EPINEPHRINE [Concomitant]
  5. LASIX [Concomitant]
  6. ROCEPHIN [Concomitant]
  7. VANCOMYCIN [Concomitant]
  8. MEROPENEM [Concomitant]
  9. VITAMIN K [Concomitant]
  10. FLUTICORTISONE [Concomitant]
  11. HYDROCORTISONE [Concomitant]

REACTIONS (13)
  - ACIDOSIS [None]
  - ANAEMIA [None]
  - CARDIOGENIC SHOCK [None]
  - CARDIOMEGALY [None]
  - COAGULOPATHY [None]
  - DEVICE RELATED INFECTION [None]
  - HEPATIC FAILURE [None]
  - HEPATOCELLULAR DAMAGE [None]
  - HYPOALBUMINAEMIA [None]
  - MORAXELLA INFECTION [None]
  - RESPIRATORY DISTRESS [None]
  - RESPIRATORY FAILURE [None]
  - SEPTIC SHOCK [None]
